FAERS Safety Report 7855211-X (Version None)
Quarter: 2011Q4

REPORT INFORMATION
  Report Type: 
  Country: None (occurrence: None)
  Receive Date: 20111026
  Receipt Date: 20111020
  Transmission Date: 20120403
  Serious: Yes (Other)
  Sender: FDA-Public Use
  Company Number: GB-AMGEN-GBRSP2011051030

PATIENT
  Age: 85 Year
  Sex: Female
  Weight: 69.9 kg

DRUGS (9)
  1. ASPIRIN [Concomitant]
     Indication: MYOCARDIAL ISCHAEMIA
     Dosage: 75 MG, UNK
     Route: 048
  2. RAMIPRIL [Concomitant]
     Indication: HYPERTENSION
     Dosage: 10 MG, UNK
     Route: 048
  3. CALCIUM CARBONATE [Concomitant]
     Dosage: UNK
     Route: 048
  4. OMEPRAZOLE [Concomitant]
     Indication: PROPHYLAXIS AGAINST GASTROINTESTINAL ULCER
     Dosage: 20 MG, UNK
     Route: 048
  5. OXYBUTYNIN [Concomitant]
     Indication: BLADDER IRRITATION
     Dosage: 5 MG, UNK
     Route: 048
  6. PRAVASTATIN [Concomitant]
     Indication: HYPERCHOLESTEROLAEMIA
     Dosage: 40 MG, UNK
     Route: 048
  7. AMLODIPINE [Concomitant]
     Indication: HYPERTENSION
     Dosage: 5 MG, UNK
     Route: 048
  8. PREDNISOLONE [Concomitant]
     Dosage: 7.5 MG, UNK
     Route: 048
  9. PROLIA [Suspect]
     Indication: OSTEOPOROSIS
     Dosage: 60 MG, Q6MO
     Route: 058
     Dates: start: 20110830

REACTIONS (6)
  - URTICARIA [None]
  - RASH ERYTHEMATOUS [None]
  - RASH PRURITIC [None]
  - RASH GENERALISED [None]
  - DRUG ERUPTION [None]
  - PURPURA [None]
